FAERS Safety Report 7682750-7 (Version None)
Quarter: 2011Q3

REPORT INFORMATION
  Report Type: 
  Country: None (occurrence: None)
  Receive Date: 20110815
  Receipt Date: 20110808
  Transmission Date: 20111222
  Serious: Yes (Other)
  Sender: FDA-Public Use
  Company Number: US-CEPHALON-US021715

PATIENT
  Age: 15 Year
  Sex: Female

DRUGS (1)
  1. MODAFINIL [Suspect]
     Route: 048
     Dates: start: 20040204

REACTIONS (3)
  - AGITATION [None]
  - IRRITABILITY [None]
  - DRUG ABUSE [None]
